FAERS Safety Report 9415741 (Version 1)
Quarter: 2013Q3

REPORT INFORMATION
  Report Type: Spontaneous
  Country: ES (occurrence: ES)
  Receive Date: 20130723
  Receipt Date: 20130723
  Transmission Date: 20140515
  Serious: Yes (Hospitalization, Other)
  Sender: FDA-Public Use
  Company Number: ES-MERCK-1307ESP012123

PATIENT
  Age: 94 Year
  Sex: Female

DRUGS (7)
  1. COZAAR 12,5 MG INICIO COMPRIMIDOS RECUBIERTOS CON PELICULA [Suspect]
     Indication: HYPERTENSION
     Dosage: 2-0-0
     Route: 048
     Dates: start: 20121030
  2. TORSEMIDE [Interacting]
     Indication: CARDIAC FAILURE CONGESTIVE
     Dosage: 1-0-0
     Route: 048
     Dates: start: 20121030, end: 20121106
  3. SERETIDE ACCUHALER [Concomitant]
     Indication: CHRONIC OBSTRUCTIVE PULMONARY DISEASE
     Dosage: 1INH/12H
     Route: 055
     Dates: start: 20121030
  4. SPIRIVA [Concomitant]
     Indication: CHRONIC OBSTRUCTIVE PULMONARY DISEASE
     Dosage: 1CAP
     Route: 055
     Dates: start: 20121030
  5. ADIRO [Concomitant]
     Indication: PROPHYLAXIS
     Dosage: 0-1-0
     Route: 048
     Dates: start: 20121030
  6. OMEPRAZOLE [Concomitant]
     Indication: PROPHYLAXIS AGAINST GASTROINTESTINAL ULCER
     Dosage: 1CP
     Route: 048
     Dates: start: 20121030, end: 20121102
  7. DUPHALAC [Concomitant]
     Indication: CONSTIPATION
     Dosage: 1SOBRE/8H
     Route: 048
     Dates: start: 20121030, end: 20121106

REACTIONS (2)
  - Hyponatraemia [Recovered/Resolved]
  - Hip fracture [Recovered/Resolved]
